FAERS Safety Report 12314697 (Version 1)
Quarter: 2016Q2

REPORT INFORMATION
  Report Type: Spontaneous
  Country: SE (occurrence: SE)
  Receive Date: 20160428
  Receipt Date: 20160428
  Transmission Date: 20160815
  Serious: Yes (Life-Threatening, Hospitalization, Other)
  Sender: FDA-Public Use
  Company Number: SE-BAXTER-2016BAX020876

PATIENT
  Age: 67 Year
  Sex: Male

DRUGS (1)
  1. SENDOXAN 1000 MG PULVER TILL INJEKTIONSV?TSKA, L?SNING [Suspect]
     Active Substance: CYCLOPHOSPHAMIDE
     Indication: PRODUCT USED FOR UNKNOWN INDICATION
     Dosage: 4TH INJECTION ON 01MAR2016.
     Route: 065
     Dates: end: 20160301

REACTIONS (4)
  - Portal hypertensive gastropathy [Unknown]
  - Cholestasis [Unknown]
  - Klebsiella bacteraemia [Unknown]
  - Hepatotoxicity [Not Recovered/Not Resolved]

NARRATIVE: CASE EVENT DATE: 201603
